FAERS Safety Report 24754188 (Version 1)
Quarter: 2024Q4

REPORT INFORMATION
  Report Type: Spontaneous
  Country: US (occurrence: None)
  Receive Date: 20241218
  Receipt Date: 20241218
  Transmission Date: 20250115
  Serious: No
  Sender: Public
  Company Number: None

PATIENT
  Age: 59 Year
  Sex: Female
  Weight: 60.75 kg

DRUGS (15)
  1. OZEMPIC [Suspect]
     Active Substance: SEMAGLUTIDE
     Indication: Type 2 diabetes mellitus
     Dosage: 1 INJECTION WEEKLY INJECTION?
     Route: 050
     Dates: start: 20240612, end: 20241204
  2. Biventricular pacemaker [Concomitant]
  3. dofetilide, [Concomitant]
  4. atorvastatin, [Concomitant]
  5. carvedilol, [Concomitant]
  6. irbesarten, [Concomitant]
  7. ELIQUIS [Concomitant]
     Active Substance: APIXABAN
  8. jardience, [Concomitant]
  9. duloxitine, [Concomitant]
  10. diazepam, [Concomitant]
  11. zolpidem, [Concomitant]
  12. Yuvifem [Concomitant]
  13. Tylenol, [Concomitant]
  14. omega-3, [Concomitant]
  15. VITAMIN D [Concomitant]
     Active Substance: VITAMIN D NOS

REACTIONS (4)
  - Dry mouth [None]
  - Tongue discomfort [None]
  - Thirst [None]
  - Ageusia [None]

NARRATIVE: CASE EVENT DATE: 20241021
